FAERS Safety Report 5515593-0 (Version None)
Quarter: 2007Q4

REPORT INFORMATION
  Report Type: 
  Country: None (occurrence: None)
  Receive Date: 20071113
  Receipt Date: 20070620
  Transmission Date: 20080405
  Serious: No
  Sender: FDA-Public Use
  Company Number: A0658929A

PATIENT
  Age: 69 Year
  Sex: Female

DRUGS (2)
  1. COREG [Suspect]
     Indication: HYPERTENSION
     Dosage: 1TAB TWICE PER DAY
     Route: 048
     Dates: start: 20030101
  2. NORVASC [Concomitant]

REACTIONS (4)
  - DIZZINESS [None]
  - DRY EYE [None]
  - FATIGUE [None]
  - PARAESTHESIA [None]
